FAERS Safety Report 12634378 (Version 1)
Quarter: 2016Q3

REPORT INFORMATION
  Report Type: Spontaneous
  Country: ES (occurrence: ES)
  Receive Date: 20160808
  Receipt Date: 20160808
  Transmission Date: 20161109
  Serious: Yes (Other)
  Sender: FDA-Public Use
  Company Number: ES-GLAXOSMITHKLINE-ES2016113975

PATIENT
  Age: 37 Year
  Sex: Female

DRUGS (10)
  1. LAMOTRIGINE. [Suspect]
     Active Substance: LAMOTRIGINE
     Dates: start: 201207
  2. QUETIAPINE. [Concomitant]
     Active Substance: QUETIAPINE
     Indication: NERVOUSNESS
     Dates: start: 201212, end: 2013
  3. QUETIAPINE. [Concomitant]
     Active Substance: QUETIAPINE
     Dates: start: 201306, end: 201312
  4. VALPROATE SODIUM. [Concomitant]
     Active Substance: VALPROATE SODIUM
     Dates: start: 201312
  5. LORMETAZEPAM [Concomitant]
     Active Substance: LORMETAZEPAM
     Dosage: AT NIGHT
     Dates: start: 201206
  6. LAMOTRIGINE. [Suspect]
     Active Substance: LAMOTRIGINE
     Dates: start: 2013
  7. LAMOTRIGINE. [Suspect]
     Active Substance: LAMOTRIGINE
     Dates: start: 201312
  8. QUETIAPINE. [Concomitant]
     Active Substance: QUETIAPINE
     Indication: INSOMNIA
     Dosage: AT BED TIME
     Dates: start: 2012
  9. ASENAPINE [Concomitant]
     Active Substance: ASENAPINE
     Dates: start: 2012, end: 201212
  10. ASENAPINE [Concomitant]
     Active Substance: ASENAPINE
     Dates: end: 2013

REACTIONS (1)
  - Cataplexy [Recovered/Resolved]

NARRATIVE: CASE EVENT DATE: 201208
